FAERS Safety Report 21179162 (Version 1)
Quarter: 2022Q3

REPORT INFORMATION
  Report Type: Spontaneous
  Country: US (occurrence: US)
  Receive Date: 20220805
  Receipt Date: 20220805
  Transmission Date: 20221027
  Serious: No
  Sender: FDA-Public Use
  Company Number: US-JAZZ-2022-US-018670

PATIENT
  Sex: Female

DRUGS (3)
  1. XYWAV [Suspect]
     Active Substance: CALCIUM OXYBATE\MAGNESIUM OXYBATE\POTASSIUM OXYBATE\SODIUM OXYBATE
     Indication: Hypersomnia
     Dosage: DOSE NOT SPECIFIED TWICE NIGHTLY, DOSE THEN INCREASED
     Dates: start: 202203
  2. XYWAV [Suspect]
     Active Substance: CALCIUM OXYBATE\MAGNESIUM OXYBATE\POTASSIUM OXYBATE\SODIUM OXYBATE
     Dosage: TWICE NIGHTLY, DOSE INCREASED
  3. XYWAV [Suspect]
     Active Substance: CALCIUM OXYBATE\MAGNESIUM OXYBATE\POTASSIUM OXYBATE\SODIUM OXYBATE
     Dosage: TWICE NIGHTLY

REACTIONS (6)
  - Tinnitus [Recovering/Resolving]
  - Taste disorder [Not Recovered/Not Resolved]
  - Eye irritation [Recovering/Resolving]
  - Unevaluable event [Recovering/Resolving]
  - Paraesthesia [Recovering/Resolving]
  - Decreased appetite [Not Recovered/Not Resolved]
